FAERS Safety Report 11742198 (Version 1)
Quarter: 2015Q4

REPORT INFORMATION
  Report Type: Spontaneous
  Country: US (occurrence: None)
  Receive Date: 20151113
  Receipt Date: 20151113
  Transmission Date: 20160304
  Serious: Yes (Hospitalization)
  Sender: FDA-Public Use
  Company Number: None

PATIENT
  Age: 59 Year
  Sex: Male
  Weight: 74.84 kg

DRUGS (3)
  1. CORICIDIN HBP [Suspect]
     Active Substance: ACETAMINOPHEN\CHLORPHENIRAMINE MALEATE
     Indication: NASOPHARYNGITIS
     Dosage: 1OR 2
     Route: 048
     Dates: start: 20151006, end: 20151008
  2. IISINOP [Concomitant]
  3. METFORMIN [Concomitant]
     Active Substance: METFORMIN HYDROCHLORIDE

REACTIONS (4)
  - Headache [None]
  - Dizziness [None]
  - Fatigue [None]
  - Hypertension [None]

NARRATIVE: CASE EVENT DATE: 20151006
